FAERS Safety Report 17791519 (Version 2)
Quarter: 2020Q2

REPORT INFORMATION
  Report Type: Spontaneous
  Country: HR (occurrence: HR)
  Receive Date: 20200515
  Receipt Date: 20200526
  Transmission Date: 20200714
  Serious: Yes (Other)
  Sender: FDA-Public Use
  Company Number: NVSC2020HR129665

PATIENT
  Age: 41 Year
  Sex: Female

DRUGS (5)
  1. PROSTIN E2 [Concomitant]
     Active Substance: DINOPROSTONE
     Indication: LABOUR INDUCTION
     Dosage: 1 DF, QD
     Route: 067
     Dates: start: 20200203, end: 20200203
  2. AMPICILLIN SODIUM. [Suspect]
     Active Substance: AMPICILLIN SODIUM
     Indication: AMNIORRHOEA
     Dosage: 2 G, QD
     Route: 041
     Dates: start: 20200203, end: 20200203
  3. SOLU-MEDROL [Suspect]
     Active Substance: METHYLPREDNISOLONE SODIUM SUCCINATE
     Indication: SWELLING FACE
     Dosage: 80 MG, QD
     Route: 041
     Dates: start: 20200203, end: 20200203
  4. RINGERS SOLUTION [Suspect]
     Active Substance: CALCIUM CHLORIDE\POTASSIUM CHLORIDE\SODIUM CHLORIDE
     Indication: SWELLING FACE
     Dosage: 500 ML, QD
     Route: 041
     Dates: start: 20200203, end: 20200203
  5. SYNOPEN [Suspect]
     Active Substance: CHLOROPYRAMINE HYDROCHLORIDE
     Indication: SWELLING FACE
     Dosage: 1 DF, QD
     Route: 041
     Dates: start: 20200203, end: 20200203

REACTIONS (4)
  - Erythema [Recovered/Resolved]
  - Peripheral swelling [Recovered/Resolved]
  - Swelling face [Recovered/Resolved]
  - Exposure during pregnancy [Recovered/Resolved]

NARRATIVE: CASE EVENT DATE: 20200203
